FAERS Safety Report 22092795 (Version 2)
Quarter: 2023Q2

REPORT INFORMATION
  Report Type: Spontaneous
  Country: US (occurrence: US)
  Receive Date: 20230314
  Receipt Date: 20230508
  Transmission Date: 20230721
  Serious: Yes (Hospitalization)
  Sender: FDA-Public Use
  Company Number: US-GLAXOSMITHKLINE-US2023035901

PATIENT

DRUGS (1)
  1. TRELEGY ELLIPTA [Suspect]
     Active Substance: FLUTICASONE FUROATE\UMECLIDINIUM BROMIDE\VILANTEROL TRIFENATATE
     Indication: Product used for unknown indication
     Dosage: 1 PUFF(S), QD
     Dates: start: 20220801

REACTIONS (5)
  - Fluid retention [Not Recovered/Not Resolved]
  - Swelling [Unknown]
  - Scrotal oedema [Not Recovered/Not Resolved]
  - Cardiac disorder [Unknown]
  - Product dose omission issue [Unknown]
